FAERS Safety Report 24078976 (Version 1)
Quarter: 2024Q3

REPORT INFORMATION
  Report Type: Spontaneous
  Country: US (occurrence: None)
  Receive Date: 20240710
  Receipt Date: 20240710
  Transmission Date: 20241016
  Serious: No
  Sender: Public
  Company Number: None

PATIENT
  Age: 55 Year
  Sex: Female

DRUGS (1)
  1. MAVYRET [Suspect]
     Active Substance: GLECAPREVIR\PIBRENTASVIR
     Dosage: 300 MG DAILY ORAL?
     Route: 048
     Dates: start: 20240210, end: 20240309

REACTIONS (6)
  - Abdominal discomfort [None]
  - Therapy cessation [None]
  - Vomiting [None]
  - Malaise [None]
  - Feeling abnormal [None]
  - Clostridium difficile infection [None]

NARRATIVE: CASE EVENT DATE: 20240626
